FAERS Safety Report 8774635 (Version 1)
Quarter: 2012Q4

REPORT INFORMATION
  Report Type: 
  Country: BR (occurrence: BR)
  Receive Date: 20120907
  Receipt Date: 20120907
  Transmission Date: 20130627
  Serious: Yes (Other)
  Sender: FDA-Public Use
  Company Number: BR-AMGEN-BRASP2012020724

PATIENT
  Age: 34 Year
  Sex: Female
  Weight: 71 kg

DRUGS (6)
  1. ENBREL [Suspect]
     Indication: RHEUMATOID ARTHRITIS
     Dosage: 50 mg, weekly
     Route: 058
     Dates: start: 201201, end: 201204
  2. HUMIRA [Suspect]
     Dosage: UNK
  3. METHOTREXATE [Concomitant]
     Dosage: 2 tablets in the morning, at lunch and at dinner
  4. CALCIUM CARBONATE [Concomitant]
     Dosage: UNK
  5. FOLIC ACID [Concomitant]
     Dosage: 5 mg, 1x/day
  6. CALCIUM [Concomitant]
     Dosage: UNK

REACTIONS (6)
  - Poisoning [Unknown]
  - Injection site warmth [Unknown]
  - Injection site erythema [Unknown]
  - Hypersensitivity [Unknown]
  - Injection site swelling [Unknown]
  - Injection site pruritus [Unknown]
